FAERS Safety Report 6697120-8 (Version None)
Quarter: 2010Q2

REPORT INFORMATION
  Report Type: 
  Country: None (occurrence: None)
  Receive Date: 20100426
  Receipt Date: 20100423
  Transmission Date: 20101027
  Serious: Yes (Life-Threatening)
  Sender: FDA-Public Use
  Company Number: JP-ASTRAZENECA-2010SE03071

PATIENT
  Age: 78 Year
  Sex: Male
  Weight: 40 kg

DRUGS (7)
  1. CASODEX [Suspect]
     Indication: PROSTATE CANCER
     Route: 048
     Dates: start: 20090925, end: 20100111
  2. ZOLADEX [Concomitant]
     Indication: PROSTATE CANCER
     Route: 058
     Dates: start: 20090925
  3. ZOLADEX [Concomitant]
     Route: 058
     Dates: start: 20091026
  4. LOXONIN [Concomitant]
     Indication: CANCER PAIN
     Route: 048
     Dates: start: 20091228
  5. MARZULENE [Concomitant]
     Indication: GASTRITIS
     Route: 048
     Dates: start: 20091228
  6. OXYCONTIN [Concomitant]
     Indication: CANCER PAIN
     Route: 048
     Dates: start: 20091229
  7. OPSO [Concomitant]
     Indication: CANCER PAIN
     Route: 048
     Dates: start: 20091229

REACTIONS (2)
  - LIVER DISORDER [None]
  - MULTI-ORGAN FAILURE [None]
